FAERS Safety Report 9671450 (Version 1)
Quarter: 2013Q4

REPORT INFORMATION
  Report Type: Spontaneous
  Country: US (occurrence: None)
  Receive Date: 20131105
  Receipt Date: 20131105
  Transmission Date: 20140711
  Serious: Yes (Other)
  Sender: FDA-Public Use
  Company Number: None

PATIENT
  Age: 46 Year
  Sex: Female
  Weight: 77.57 kg

DRUGS (1)
  1. CYCLOBENZAPRINE 10MG CAMBER [Suspect]
     Indication: SPINAL OSTEOARTHRITIS
     Dosage: 3 PILLS THREE TIMES DAILY TAKEN BY MOUTH
     Route: 048
     Dates: start: 20120901, end: 20131103

REACTIONS (22)
  - Dizziness [None]
  - Nausea [None]
  - Constipation [None]
  - Burning sensation [None]
  - Joint swelling [None]
  - Headache [None]
  - Hypertension [None]
  - Vitreous floaters [None]
  - Dizziness [None]
  - Eyelid oedema [None]
  - Local swelling [None]
  - Protein urine present [None]
  - Blood urine present [None]
  - Cardiac murmur [None]
  - Heart valve incompetence [None]
  - Renal failure chronic [None]
  - Amnesia [None]
  - Asthenia [None]
  - Paraesthesia [None]
  - Vision blurred [None]
  - Diplopia [None]
  - Rash [None]
